FAERS Safety Report 9607675 (Version 1)
Quarter: 2013Q4

REPORT INFORMATION
  Report Type: Spontaneous
  Country: US (occurrence: US)
  Receive Date: 20131009
  Receipt Date: 20131009
  Transmission Date: 20140711
  Serious: No
  Sender: FDA-Public Use
  Company Number: US-SANOFI-AVENTIS-2013SA066789

PATIENT
  Sex: Female

DRUGS (5)
  1. ARAVA [Suspect]
     Indication: SYNOVITIS
     Route: 065
  2. ARAVA [Suspect]
     Indication: DENGUE FEVER
     Route: 065
  3. TRAMADOL [Concomitant]
  4. NIMESULIDE [Concomitant]
     Indication: PAIN
  5. LEVOCARNITINE [Concomitant]
     Indication: PROPHYLAXIS

REACTIONS (2)
  - Pyrexia [Unknown]
  - Rash [Unknown]
